FAERS Safety Report 16761078 (Version 1)
Quarter: 2019Q3

REPORT INFORMATION
  Report Type: Spontaneous
  Country: US (occurrence: US)
  Receive Date: 20190830
  Receipt Date: 20190830
  Transmission Date: 20191005
  Serious: No
  Sender: FDA-Public Use
  Company Number: US-ANIPHARMA-2018-US-014051

PATIENT
  Age: 59 Year
  Sex: Female
  Weight: 85.28 kg

DRUGS (3)
  1. ARIMIDEX [Suspect]
     Active Substance: ANASTROZOLE
     Indication: PRODUCT USED FOR UNKNOWN INDICATION
     Dosage: ONE TABLET DAILY
     Route: 048
     Dates: start: 20180604, end: 20180625
  2. VITAMIN D [Concomitant]
     Active Substance: VITAMIN D NOS
  3. LOSARTAN. [Concomitant]
     Active Substance: LOSARTAN
     Dosage: AS NEEDED

REACTIONS (7)
  - Depression [Recovered/Resolved]
  - Arthralgia [Recovered/Resolved]
  - Feeling abnormal [Recovered/Resolved]
  - Muscle spasms [Recovered/Resolved]
  - Amnesia [Recovered/Resolved]
  - Weight increased [Not Recovered/Not Resolved]
  - Irritability [Recovered/Resolved]

NARRATIVE: CASE EVENT DATE: 20180614
